FAERS Safety Report 14013260 (Version 2)
Quarter: 2018Q2

REPORT INFORMATION
  Report Type: Spontaneous
  Country: US (occurrence: US)
  Receive Date: 20170926
  Receipt Date: 20180406
  Transmission Date: 20180711
  Serious: No
  Sender: FDA-Public Use
  Company Number: US-ASTRAZENECA-2017SE97923

PATIENT
  Sex: Female
  Weight: 72.6 kg

DRUGS (1)
  1. SYMBICORT [Suspect]
     Active Substance: BUDESONIDE\FORMOTEROL FUMARATE DIHYDRATE
     Indication: ASTHMA
     Dosage: 80/4.5 MCG TWO INHALATIONS TWICE A DAY AS NEEDED
     Route: 055

REACTIONS (6)
  - Device malfunction [Unknown]
  - Off label use [Unknown]
  - Device failure [Unknown]
  - Extrasystoles [Unknown]
  - Abdominal discomfort [Unknown]
  - Gait disturbance [Unknown]
